FAERS Safety Report 23027040 (Version 1)
Quarter: 2023Q4

REPORT INFORMATION
  Report Type: Report from Study
  Country: ES (occurrence: ES)
  Receive Date: 20231004
  Receipt Date: 20231004
  Transmission Date: 20240110
  Serious: Yes (Other)
  Sender: FDA-Public Use
  Company Number: ES-Accord-381853

PATIENT

DRUGS (1)
  1. TEMOZOLOMIDE [Suspect]
     Active Substance: TEMOZOLOMIDE
     Indication: Neuroendocrine tumour
     Dosage: FOR 5 DAYS IN 28-DAY CYCLES

REACTIONS (2)
  - Leukaemia [Unknown]
  - Off label use [Unknown]
